FAERS Safety Report 13075302 (Version 1)
Quarter: 2016Q4

REPORT INFORMATION
  Report Type: Report from Study
  Country: US (occurrence: US)
  Receive Date: 20161230
  Receipt Date: 20161230
  Transmission Date: 20170207
  Serious: Yes (Death)
  Sender: FDA-Public Use
  Company Number: US-ASTRAZENECA-2016SF37586

PATIENT
  Age: 50 Year
  Sex: Female

DRUGS (1)
  1. IRESSA [Suspect]
     Active Substance: GEFITINIB
     Indication: METASTASES TO LUNG
     Route: 048
     Dates: start: 20161216, end: 20161221

REACTIONS (1)
  - Death [Fatal]

NARRATIVE: CASE EVENT DATE: 20161221
